FAERS Safety Report 7576737-2 (Version None)
Quarter: 2011Q2

REPORT INFORMATION
  Report Type: 
  Country: None (occurrence: None)
  Receive Date: 20110628
  Receipt Date: 20091122
  Transmission Date: 20111010
  Serious: Yes (Other)
  Sender: FDA-Public Use
  Company Number: US-BAYER-200940340NA

PATIENT
  Age: 52 Year
  Sex: Male
  Weight: 74 kg

DRUGS (23)
  1. FENTANYL [Concomitant]
     Dosage: 15 MG, UNK
     Dates: start: 20010517, end: 20010517
  2. MANNITOL [Concomitant]
     Dosage: UNK
     Dates: start: 20010606
  3. REGULAR INSULIN [Concomitant]
     Dosage: 13 U, UNK
     Dates: start: 20010606
  4. DOPAMINE HCL [Concomitant]
     Dosage: UNK
     Dates: start: 20010606
  5. TRASYLOL [Suspect]
  6. SUCCINYLCHOLINE CHLORIDE [Concomitant]
     Dosage: UNK
     Dates: start: 20010517
  7. SODIUM BICARBONATE [Concomitant]
     Dosage: 50 UNK, UNK
     Dates: start: 20010606
  8. FENTANYL [Concomitant]
     Dosage: UNK
     Dates: start: 20010606
  9. PANCURONIUM [Concomitant]
     Dosage: 20 MG, UNK
     Dates: start: 20010517, end: 20010517
  10. PLASMA [Concomitant]
     Dosage: 18 U, UNK
     Route: 042
     Dates: start: 20010517
  11. VERSED [Concomitant]
     Dosage: 10 MG, UNK
     Dates: start: 20010517, end: 20010517
  12. PROTAMINE SULFATE [Concomitant]
     Dosage: UNK
     Dates: start: 20010517, end: 20010517
  13. NEOSYNEPHRINE [Concomitant]
     Dosage: UNK
     Dates: start: 20010606
  14. EPINEPHRINE [Concomitant]
     Dosage: UNK
     Dates: start: 20010606
  15. RED BLOOD CELLS [Concomitant]
     Dosage: 11 U, UNK
     Route: 042
     Dates: start: 20010517
  16. BENADRYL [Concomitant]
     Dosage: 50 MG, UNK
     Dates: start: 20010606
  17. TRASYLOL [Suspect]
     Indication: CARDIAC OPERATION
     Dosage: 200 ML, UNK
     Route: 042
     Dates: start: 20010606, end: 20010606
  18. VANCOMYCIN [Concomitant]
     Dosage: 1 G, UNK
     Dates: start: 20010517, end: 20010517
  19. TRASYLOL [Suspect]
     Indication: STERNOTOMY
     Dosage: 50 ML, Q1HR
     Route: 042
     Dates: start: 20010517, end: 20010517
  20. TRASYLOL [Suspect]
     Indication: VENTRICULAR ASSIST DEVICE INSERTION
     Dosage: 2 ML, UNK
     Route: 042
     Dates: start: 20010606, end: 20010606
  21. TRASYLOL [Suspect]
     Indication: HEART TRANSPLANT
  22. PROTONIX [Concomitant]
     Dosage: 50 MG, UNK
     Dates: start: 20010517, end: 20010517
  23. LASIX [Concomitant]
     Dosage: 40 MG, UNK
     Dates: start: 20010606

REACTIONS (12)
  - RENAL INJURY [None]
  - ANXIETY [None]
  - PAIN [None]
  - ANHEDONIA [None]
  - RENAL FAILURE ACUTE [None]
  - RENAL IMPAIRMENT [None]
  - FEAR [None]
  - RENAL FAILURE [None]
  - EMOTIONAL DISTRESS [None]
  - UNEVALUABLE EVENT [None]
  - STRESS [None]
  - INJURY [None]
